FAERS Safety Report 13677865 (Version 5)
Quarter: 2017Q3

REPORT INFORMATION
  Report Type: Spontaneous
  Country: JP (occurrence: JP)
  Receive Date: 20170622
  Receipt Date: 20170808
  Transmission Date: 20171127
  Serious: Yes (Other)
  Sender: FDA-Public Use
  Company Number: JP-VIFOR (INTERNATIONAL) INC.-VIT-2017-06818

PATIENT
  Age: 50 Year
  Sex: Male

DRUGS (10)
  1. EPOGIN [Suspect]
     Active Substance: ERYTHROPOIETIN
     Route: 065
     Dates: start: 20170417
  2. EPOGIN [Suspect]
     Active Substance: ERYTHROPOIETIN
     Route: 065
     Dates: start: 20170228, end: 20170308
  3. LANSOPRAZOLE. [Concomitant]
     Active Substance: LANSOPRAZOLE
     Route: 065
  4. VELPHORO [Suspect]
     Active Substance: FERRIC OXYHYDROXIDE
     Route: 048
     Dates: start: 20170329, end: 20170518
  5. EPOGIN [Suspect]
     Active Substance: ERYTHROPOIETIN
     Route: 065
     Dates: end: 20170227
  6. BISOPROLOL FUMARATE. [Concomitant]
     Active Substance: BISOPROLOL FUMARATE
     Route: 065
  7. VELPHORO [Suspect]
     Active Substance: FERRIC OXYHYDROXIDE
     Indication: HYPERPHOSPHATAEMIA
     Route: 048
     Dates: start: 20170301, end: 20170328
  8. ROCALTROL [Concomitant]
     Active Substance: CALCITRIOL
     Route: 065
  9. ACETYLSALICYLIC ACID [Concomitant]
     Active Substance: ASPIRIN
     Route: 048
  10. EPOGIN [Suspect]
     Active Substance: ERYTHROPOIETIN
     Route: 065
     Dates: start: 20170308, end: 20170417

REACTIONS (1)
  - Haemoglobin increased [Recovering/Resolving]

NARRATIVE: CASE EVENT DATE: 20170515
